FAERS Safety Report 5228888-5 (Version None)
Quarter: 2007Q1

REPORT INFORMATION
  Report Type: 
  Country: None (occurrence: None)
  Receive Date: 20070131
  Receipt Date: 20070122
  Transmission Date: 20070707
  Serious: Yes (Life-Threatening)
  Sender: FDA-Public Use
  Company Number: R301621-315-USA

PATIENT
  Age: 68 Year
  Sex: Male

DRUGS (8)
  1. ACIPHEX [Suspect]
     Indication: DYSPEPSIA
     Dosage: 10 MG, 1 IN 1 D, ORAL
     Route: 048
     Dates: start: 20060509, end: 20060523
  2. INSULIN [Suspect]
     Indication: DIABETES MELLITUS
     Dosage: SLIDING SCALE, SUBCUTANEOUS
     Route: 058
     Dates: start: 20010101
  3. METOLAZONE [Concomitant]
  4. BUPROPION HCL [Concomitant]
  5. LIPITOR [Concomitant]
  6. TRICOR [Concomitant]
  7. NPH INSULIN [Concomitant]
  8. PREVACID [Concomitant]

REACTIONS (2)
  - BLOOD GLUCOSE DECREASED [None]
  - LOSS OF CONSCIOUSNESS [None]
